FAERS Safety Report 5772341-7 (Version None)
Quarter: 2008Q2

REPORT INFORMATION
  Report Type: 
  Country: None (occurrence: None)
  Receive Date: 20080613
  Receipt Date: 20080606
  Transmission Date: 20081010
  Serious: Yes (Life-Threatening)
  Sender: FDA-Public Use
  Company Number: GB-ROCHE-568991

PATIENT
  Age: 24 Year
  Sex: Male

DRUGS (3)
  1. ISOTRETINOIN [Suspect]
     Route: 048
  2. ANTIBIOTIC NOS [Concomitant]
  3. MINOCYCLINE HCL [Concomitant]

REACTIONS (1)
  - LIPOSARCOMA [None]
